FAERS Safety Report 8529449-2 (Version None)
Quarter: 2012Q3

REPORT INFORMATION
  Report Type: 
  Country: None (occurrence: None)
  Receive Date: 20120723
  Receipt Date: 20120711
  Transmission Date: 20120928
  Serious: Yes (Other)
  Sender: FDA-Public Use
  Company Number: FR-VERTEX PHARMACEUTICALS INC.-000000000000000919

PATIENT
  Age: 38 Year
  Sex: Female
  Weight: 75 kg

DRUGS (5)
  1. INCIVO [Suspect]
     Indication: HEPATITIS C
     Dosage: DOSAGE FORM: TABLET
     Route: 048
     Dates: start: 20111118, end: 20120113
  2. ESCITALOPRAM [Concomitant]
  3. ATARAX [Concomitant]
  4. RIBAVIRIN [Concomitant]
     Indication: HEPATITIS C
     Route: 048
     Dates: start: 20111118, end: 20120504
  5. PEGASYS [Concomitant]
     Indication: HEPATITIS C
     Dates: start: 20111118, end: 20120504

REACTIONS (5)
  - COUGH [None]
  - PRURITUS [None]
  - LYMPHADENOPATHY MEDIASTINAL [None]
  - DYSPNOEA [None]
  - DEPRESSION [None]
